FAERS Safety Report 7754269-6 (Version None)
Quarter: 2011Q3

REPORT INFORMATION
  Report Type: 
  Country: None (occurrence: None)
  Receive Date: 20110913
  Receipt Date: 20110901
  Transmission Date: 20111222
  Serious: Yes (Death)
  Sender: FDA-Public Use
  Company Number: UTC-009897

PATIENT
  Age: 80 Year
  Sex: Female
  Weight: 85 kg

DRUGS (1)
  1. REMODULIN [Suspect]
     Indication: COR PULMONALE CHRONIC
     Dosage: 83.52 UG/KG (0.058 UG/KG, 1 IN 2 MIN) ,SUBCUTANEOUS
     Route: 058
     Dates: start: 20080419

REACTIONS (1)
  - DEATH [None]
